FAERS Safety Report 20034799 (Version 2)
Quarter: 2021Q4

REPORT INFORMATION
  Report Type: Spontaneous
  Country: DE (occurrence: DE)
  Receive Date: 20211104
  Receipt Date: 20211115
  Transmission Date: 20220303
  Serious: Yes (Other)
  Sender: FDA-Public Use
  Company Number: DE-VER-202100061

PATIENT
  Age: 67 Year
  Sex: Male

DRUGS (4)
  1. TRIPTORELIN PAMOATE [Suspect]
     Active Substance: TRIPTORELIN PAMOATE
     Indication: Prostate cancer
     Route: 065
     Dates: start: 202008, end: 20211028
  2. DICLOFENAC [Concomitant]
     Active Substance: DICLOFENAC
     Route: 065
  3. ZYTIGA [Concomitant]
     Active Substance: ABIRATERONE ACETATE
     Indication: Prostate cancer
     Route: 065
  4. ABIRATERONE [Suspect]
     Active Substance: ABIRATERONE
     Indication: Prostate cancer
     Route: 065
     Dates: start: 2020, end: 202101

REACTIONS (15)
  - Back pain [Unknown]
  - Chills [Recovering/Resolving]
  - Gait disturbance [Recovering/Resolving]
  - Peripheral swelling [Recovering/Resolving]
  - Piloerection [Recovering/Resolving]
  - Musculoskeletal discomfort [Recovering/Resolving]
  - Product administered at inappropriate site [Unknown]
  - Arthralgia [Recovering/Resolving]
  - Mood swings [Recovering/Resolving]
  - Muscle atrophy [Recovering/Resolving]
  - Oedema peripheral [Recovering/Resolving]
  - Intervertebral disc disorder [Unknown]
  - Condition aggravated [Recovering/Resolving]
  - Walking aid user [Unknown]
  - Asthenia [Recovering/Resolving]

NARRATIVE: CASE EVENT DATE: 20200801
